FAERS Safety Report 20669959 (Version 1)
Quarter: 2022Q2

REPORT INFORMATION
  Report Type: Spontaneous
  Country: US (occurrence: US)
  Receive Date: 20220404
  Receipt Date: 20220404
  Transmission Date: 20220721
  Serious: Yes (Other)
  Sender: FDA-Public Use
  Company Number: US-NOVARTISPH-NVSC2022US075192

PATIENT
  Age: 79 Year
  Sex: Female

DRUGS (1)
  1. LETROZOLE [Suspect]
     Active Substance: LETROZOLE
     Indication: Product used for unknown indication
     Dosage: UNK
     Route: 065

REACTIONS (9)
  - Oedema peripheral [Unknown]
  - Joint swelling [Unknown]
  - Arthralgia [Unknown]
  - Dry eye [Unknown]
  - Peripheral swelling [Unknown]
  - Renal disorder [Unknown]
  - Memory impairment [Unknown]
  - Gait inability [Unknown]
  - Drug hypersensitivity [Unknown]
